FAERS Safety Report 8143955-4 (Version None)
Quarter: 2012Q1

REPORT INFORMATION
  Report Type: 
  Country: None (occurrence: None)
  Receive Date: 20120217
  Receipt Date: 20120217
  Transmission Date: 20120608
  Serious: No
  Sender: FDA-Public Use
  Company Number: None

PATIENT
  Age: 52 Year
  Sex: Female
  Weight: 81.646 kg

DRUGS (1)
  1. DOXYCYCLINE HYCLATE [Suspect]
     Indication: SINUSITIS
     Dosage: 1 CAP
     Route: 048
     Dates: start: 20120208, end: 20120210

REACTIONS (5)
  - PAIN IN EXTREMITY [None]
  - DYSSTASIA [None]
  - MUSCLE DISORDER [None]
  - OEDEMA PERIPHERAL [None]
  - ARTHROPATHY [None]
